FAERS Safety Report 6587892-5 (Version None)
Quarter: 2010Q1

REPORT INFORMATION
  Report Type: 
  Country: None (occurrence: None)
  Receive Date: 20100217
  Receipt Date: 20100217
  Transmission Date: 20100710
  Serious: No
  Sender: FDA-Public Use
  Company Number: None

PATIENT
  Age: 14 Year
  Sex: Female
  Weight: 58.6 kg

DRUGS (2)
  1. SOLODYN [Suspect]
     Indication: ACNE
     Dosage: 90MG QD PO
     Route: 048
     Dates: start: 20081001, end: 20090713
  2. SOLODYN [Suspect]
     Indication: ACNE
     Dosage: 90MG QD PO
     Route: 048
     Dates: start: 20090713, end: 20090813

REACTIONS (5)
  - HEADACHE [None]
  - HEPATITIS [None]
  - LETHARGY [None]
  - LUPUS-LIKE SYNDROME [None]
  - NAUSEA [None]
